FAERS Safety Report 8393884-6 (Version None)
Quarter: 2012Q2

REPORT INFORMATION
  Report Type: 
  Country: None (occurrence: None)
  Receive Date: 20120516
  Receipt Date: 20120508
  Transmission Date: 20120825
  Serious: Yes (Other)
  Sender: FDA-Public Use
  Company Number: 2012SP024455

PATIENT
  Age: 37 Year
  Sex: Male

DRUGS (1)
  1. DESLORATADINE [Suspect]
     Indication: SEASONAL ALLERGY
     Dosage: 5 MG;QD;PO
     Route: 048
     Dates: start: 20120306, end: 20120414

REACTIONS (2)
  - LIBIDO DECREASED [None]
  - ERECTILE DYSFUNCTION [None]
